FAERS Safety Report 20855093 (Version 2)
Quarter: 2022Q2

REPORT INFORMATION
  Report Type: Report from Study
  Country: CA (occurrence: CA)
  Receive Date: 20220520
  Receipt Date: 20220520
  Transmission Date: 20220721
  Serious: Yes (Other)
  Sender: FDA-Public Use
  Company Number: CA-PFIZER INC-202200717327

PATIENT
  Age: 53 Year
  Sex: Male
  Weight: 91 kg

DRUGS (10)
  1. CALCIUM CHLORIDE [Suspect]
     Active Substance: CALCIUM CHLORIDE
     Route: 065
  2. RITUXIMAB [Suspect]
     Active Substance: RITUXIMAB
     Indication: Vasculitis
     Dosage: 1000 MG
     Route: 042
  3. RITUXIMAB [Suspect]
     Active Substance: RITUXIMAB
     Indication: Vasculitis
     Dosage: 1000 MG
     Route: 042
  4. ACETAMINOPHEN [Concomitant]
     Active Substance: ACETAMINOPHEN
     Indication: Premedication
     Dosage: 650 MG
     Route: 048
  5. ALENDRONATE SODIUM [Concomitant]
     Active Substance: ALENDRONATE SODIUM
     Dosage: UNK, 1 EVERY 1 WEEKS
     Route: 065
  6. DIPHENHYDRAMINE HYDROCHLORIDE [Concomitant]
     Active Substance: DIPHENHYDRAMINE HYDROCHLORIDE
     Indication: Premedication
     Dosage: 50 MG
     Route: 048
  7. METHYLPREDNISOLONE [Concomitant]
     Active Substance: METHYLPREDNISOLONE
     Indication: Premedication
     Dosage: 100 MG
     Route: 042
  8. NAPROXEN [Concomitant]
     Active Substance: NAPROXEN
     Dosage: UNK, 2 EVERY 1 DAYS
     Route: 065
  9. PREDNISONE [Concomitant]
     Active Substance: PREDNISONE
     Dosage: 14 MG, 1 EVERY 1 DAYS
     Route: 065
  10. ZOCOR [Concomitant]
     Active Substance: SIMVASTATIN

REACTIONS (9)
  - Blood pressure diastolic abnormal [Unknown]
  - Blood pressure diastolic increased [Unknown]
  - Blood pressure systolic abnormal [Unknown]
  - Blood pressure systolic increased [Unknown]
  - Infusion related reaction [Unknown]
  - Nephrolithiasis [Unknown]
  - Off label use [Unknown]
  - Oxygen saturation decreased [Unknown]
  - Weight increased [Unknown]
